FAERS Safety Report 7691408-X (Version None)
Quarter: 2011Q3

REPORT INFORMATION
  Report Type: 
  Country: None (occurrence: None)
  Receive Date: 20110818
  Receipt Date: 20110808
  Transmission Date: 20111222
  Serious: Yes (Other)
  Sender: FDA-Public Use
  Company Number: PHHY2011US66463

PATIENT
  Sex: Male
  Weight: 82 kg

DRUGS (8)
  1. TRIGLYCERIDES [Concomitant]
     Dosage: QUADRUPLED IN 1 MONTH
  2. COREG [Concomitant]
     Dosage: 25 MG, QD
     Route: 048
  3. LASIX [Concomitant]
     Dosage: 40 MG, QD
     Route: 048
  4. CORDARONE [Concomitant]
     Dosage: 200 MG, QD
     Route: 048
  5. AFINITOR [Suspect]
     Indication: CARCINOID TUMOUR
     Dosage: 10 MG, QD
     Route: 048
     Dates: start: 20110608, end: 20110711
  6. PLAVIX [Concomitant]
     Dosage: 75 MG, UNK
     Route: 048
  7. NORVASC [Concomitant]
     Dosage: 2.5 MG, QD
     Route: 048
  8. LIPITOR [Concomitant]
     Dosage: 40 MG, QD
     Route: 048

REACTIONS (4)
  - CONSTIPATION [None]
  - EMOTIONAL DISORDER [None]
  - CRYING [None]
  - DEPRESSION [None]
